FAERS Safety Report 15046429 (Version 5)
Quarter: 2018Q3

REPORT INFORMATION
  Report Type: Spontaneous
  Country: JP (occurrence: JP)
  Receive Date: 20180621
  Receipt Date: 20180918
  Transmission Date: 20181010
  Serious: Yes (Death, Hospitalization, Other)
  Sender: FDA-Public Use
  Company Number: PHJP2018JP012635

PATIENT
  Age: 74 Year
  Sex: Male
  Weight: 74 kg

DRUGS (11)
  1. NEORAL [Suspect]
     Active Substance: CYCLOSPORINE
     Indication: PAROXYSMAL NOCTURNAL HAEMOGLOBINURIA
     Dosage: 50 MG, BID
     Route: 048
     Dates: start: 2002, end: 20171025
  2. PREDONINE [Suspect]
     Active Substance: PREDNISOLONE
     Dosage: UNK
     Route: 048
     Dates: end: 20171018
  3. LANSOPRAZOLE. [Suspect]
     Active Substance: LANSOPRAZOLE
     Indication: GASTRITIS
     Dosage: 15 MG, QD
     Route: 048
     Dates: start: 20171019, end: 20171025
  4. PREDONINE [Suspect]
     Active Substance: PREDNISOLONE
     Indication: HISTIOCYTOSIS HAEMATOPHAGIC
     Dosage: 40 MG, BID
     Route: 048
     Dates: start: 20170904
  5. METHYLPREDNISOLONE. [Suspect]
     Active Substance: METHYLPREDNISOLONE
     Indication: LUNG DISORDER
     Dosage: 500 MG, QD
     Route: 042
     Dates: start: 20171019, end: 20171024
  6. NEORAL [Suspect]
     Active Substance: CYCLOSPORINE
     Dosage: UNK
  7. PRIMOBOLAN?DEPOT [Suspect]
     Active Substance: METHENOLONE ENANTHATE
     Indication: PAROXYSMAL NOCTURNAL HAEMOGLOBINURIA
     Dosage: 5 MG, TID
     Route: 048
     Dates: start: 20121005, end: 20171025
  8. AMLODIPINE [Suspect]
     Active Substance: AMLODIPINE BESYLATE
     Indication: HYPERTENSION
     Dosage: 5 MG, QD
     Route: 048
     Dates: end: 20171025
  9. NEORAL [Suspect]
     Active Substance: CYCLOSPORINE
     Indication: APLASTIC ANAEMIA
     Dosage: UNK
  10. NEORAL [Suspect]
     Active Substance: CYCLOSPORINE
     Dosage: UNK
  11. PRIMOBOLAN?DEPOT [Suspect]
     Active Substance: METHENOLONE ENANTHATE
     Indication: APLASTIC ANAEMIA

REACTIONS (10)
  - Product use in unapproved indication [Unknown]
  - Pneumocystis jirovecii pneumonia [Fatal]
  - Histiocytosis haematophagic [Recovering/Resolving]
  - Dyspnoea [Fatal]
  - Abdominal pain [Unknown]
  - Gastrointestinal candidiasis [Unknown]
  - Gastritis [Unknown]
  - Gastric perforation [Unknown]
  - Biliary tract infection [Unknown]
  - Bronchopulmonary aspergillosis [Unknown]

NARRATIVE: CASE EVENT DATE: 201709
